FAERS Safety Report 12051011 (Version 1)
Quarter: 2016Q1

REPORT INFORMATION
  Report Type: Spontaneous
  Country: US (occurrence: None)
  Receive Date: 20160208
  Receipt Date: 20160208
  Transmission Date: 20160526
  Serious: Yes (Hospitalization, Disabling)
  Sender: FDA-Public Use
  Company Number: None

PATIENT
  Age: 61 Year
  Sex: Male
  Weight: 88.45 kg

DRUGS (2)
  1. SUBOXONE [Suspect]
     Active Substance: BUPRENORPHINE HYDROCHLORIDE\NALOXONE HYDROCHLORIDE
     Indication: ANORECTAL OPERATION
     Dosage: 8 MG, TWICE DAILY, TAKEN UNDER THE TONGUE
  2. ONLY VITAMINS [Concomitant]

REACTIONS (3)
  - Withdrawal syndrome [None]
  - Suicidal ideation [None]
  - Product quality issue [None]

NARRATIVE: CASE EVENT DATE: 20160127
